FAERS Safety Report 10230005 (Version 2)
Quarter: 2014Q2

REPORT INFORMATION
  Report Type: Spontaneous
  Country: SE (occurrence: SE)
  Receive Date: 20140611
  Receipt Date: 20140618
  Transmission Date: 20141212
  Serious: Yes (Other)
  Sender: FDA-Public Use
  Company Number: SE-JNJFOC-20140602963

PATIENT
  Age: 45 Year
  Sex: Female

DRUGS (6)
  1. REMICADE [Suspect]
     Indication: PSORIATIC ARTHROPATHY
     Route: 042
     Dates: start: 20130521
  2. REMICADE [Suspect]
     Indication: PSORIATIC ARTHROPATHY
     Route: 042
     Dates: start: 20140409, end: 20140409
  3. RELIFEX [Concomitant]
     Dosage: PRN (WHEN NEEDED)
     Route: 065
  4. BETAPRED [Concomitant]
     Indication: PREMEDICATION
     Route: 065
     Dates: start: 20140409
  5. PARACETAMOL [Concomitant]
     Indication: PREMEDICATION
     Route: 065
     Dates: start: 20140409
  6. LOSARTAN [Concomitant]
     Indication: PREMEDICATION
     Route: 065
     Dates: start: 20140409

REACTIONS (7)
  - Infusion related reaction [Recovered/Resolved]
  - Chest discomfort [Recovered/Resolved]
  - Malaise [Recovered/Resolved]
  - Headache [Recovered/Resolved]
  - Ocular discomfort [Recovered/Resolved]
  - Discomfort [Recovered/Resolved]
  - Hyperhidrosis [Recovered/Resolved]
